FAERS Safety Report 6728378-4 (Version None)
Quarter: 2010Q2

REPORT INFORMATION
  Report Type: 
  Country: None (occurrence: None)
  Receive Date: 20100517
  Receipt Date: 20100505
  Transmission Date: 20101027
  Serious: Yes (Hospitalization)
  Sender: FDA-Public Use
  Company Number: US-JNJFOC-20100503496

PATIENT
  Age: 19 Month
  Sex: Male
  Weight: 9.98 kg

DRUGS (5)
  1. CONCENTRATED TYLENOL INFANT DROPS [Suspect]
     Indication: TEETHING
     Route: 048
  2. CONCENTRATED TYLENOL INFANT DROPS [Suspect]
     Indication: EAR PAIN
     Route: 048
  3. CONCENTRATED TYLENOL INFANT DROPS [Suspect]
     Indication: TEETHING
     Dosage: 160MG 2-3X DAILY
     Route: 048
  4. CONCENTRATED TYLENOL INFANT DROPS [Suspect]
     Indication: EAR PAIN
     Dosage: 160MG 2-3X DAILY
     Route: 048
  5. PREVACID [Concomitant]
     Indication: GASTROOESOPHAGEAL REFLUX DISEASE
     Dosage: 1/2 TABLET TWICE DAILY

REACTIONS (3)
  - LIP SWELLING [None]
  - LYMPHADENOPATHY [None]
  - PRODUCT QUALITY ISSUE [None]
